FAERS Safety Report 22223599 (Version 2)
Quarter: 2023Q2

REPORT INFORMATION
  Report Type: Report from Study
  Country: MX (occurrence: MX)
  Receive Date: 20230418
  Receipt Date: 20230529
  Transmission Date: 20230721
  Serious: Yes (Other)
  Sender: FDA-Public Use
  Company Number: MX-002147023-NVSC2023MX050332

PATIENT
  Age: 61 Year
  Sex: Female
  Weight: 54 kg

DRUGS (7)
  1. FEMARA [Suspect]
     Active Substance: LETROZOLE
     Indication: Breast cancer
     Dosage: 2.5 MG, QD (1 (2.5MG))
     Route: 048
     Dates: start: 202301
  2. FEMARA [Suspect]
     Active Substance: LETROZOLE
     Dosage: 1 DOSAGE FORM, QD (2.5 MG)
     Route: 048
     Dates: start: 20230118
  3. FEMARA [Suspect]
     Active Substance: LETROZOLE
     Dosage: 1 DOSAGE FORM, QD (2.5 MG)
     Route: 048
     Dates: start: 20230215
  4. ABEMACICLIB [Suspect]
     Active Substance: ABEMACICLIB
     Indication: Breast cancer
     Dosage: 1 DOSAGE FORM, BID (100MG)
     Route: 048
     Dates: start: 20230214, end: 20230321
  5. ABEMACICLIB [Suspect]
     Active Substance: ABEMACICLIB
     Dosage: 1 DOSAGE FORM, Q12H (150 MG)
     Route: 048
     Dates: start: 20230322
  6. CALTRATE 600+D [Concomitant]
     Indication: Prophylaxis
     Dosage: 1 DOSAGE FORM, QD (400UI)
     Route: 048
     Dates: start: 20230118
  7. CALTRATE 600+D [Concomitant]
     Dosage: 1 DOSAGE FORM, QD (600 UI)
     Route: 048

REACTIONS (25)
  - Syncope [Unknown]
  - Balance disorder [Recovering/Resolving]
  - Arthralgia [Recovering/Resolving]
  - Headache [Recovering/Resolving]
  - Bone pain [Recovering/Resolving]
  - Neck injury [Not Recovered/Not Resolved]
  - Blood glucose [Unknown]
  - Viral infection [Recovered/Resolved]
  - Road traffic accident [Unknown]
  - Tremor [Recovered/Resolved]
  - Hypoaesthesia [Recovered/Resolved]
  - Diarrhoea [Recovered/Resolved]
  - Decreased appetite [Recovered/Resolved]
  - Dry mouth [Recovered/Resolved]
  - Malaise [Recovered/Resolved]
  - Fatigue [Recovered/Resolved]
  - Weight decreased [Unknown]
  - Blood pressure decreased [Recovered/Resolved]
  - Pain in extremity [Recovering/Resolving]
  - Blood pressure decreased [Recovering/Resolving]
  - Oesophageal disorder [Unknown]
  - Eating disorder [Unknown]
  - Feeling abnormal [Unknown]
  - Eye disorder [Unknown]
  - Diarrhoea [Not Recovered/Not Resolved]

NARRATIVE: CASE EVENT DATE: 20230122
